FAERS Safety Report 6934548-2 (Version None)
Quarter: 2010Q3

REPORT INFORMATION
  Report Type: 
  Country: None (occurrence: None)
  Receive Date: 20100820
  Receipt Date: 20100813
  Transmission Date: 20110219
  Serious: Yes (Hospitalization, Other)
  Sender: FDA-Public Use
  Company Number: GB-AMGEN-QUU431086

PATIENT
  Age: 82 Year
  Sex: Female
  Weight: 63 kg

DRUGS (3)
  1. CINACALCET HYDROCHLORIDE [Suspect]
     Indication: PRODUCT USED FOR UNKNOWN INDICATION
     Route: 048
     Dates: start: 20100616
  2. WARFARIN [Concomitant]
  3. ZOLEDRONIC ACID [Concomitant]
     Route: 042
     Dates: start: 20100601

REACTIONS (2)
  - HYPOCALCAEMIA [None]
  - INTERNATIONAL NORMALISED RATIO INCREASED [None]
